FAERS Safety Report 8229568 (Version 7)
Quarter: 2013Q1

REPORT INFORMATION
  Report Type: Spontaneous
  Country: US (occurrence: US)
  Receive Date: 20111104
  Receipt Date: 20130225
  Transmission Date: 20140127
  Serious: Yes (Death, Other)
  Sender: FDA-Public Use
  Company Number: US-B.I. PHARMACEUTICALS,INC./RIDGEFIELD-2011-BP-25442BP

PATIENT
  Age: 83 None
  Sex: Female
  Weight: 70.31 kg

DRUGS (15)
  1. PRADAXA [Suspect]
     Indication: ATRIAL FIBRILLATION
     Dosage: 300 MG
     Route: 048
     Dates: start: 20110831, end: 20110930
  2. PRADAXA [Suspect]
     Indication: ANTICOAGULANT THERAPY
     Dosage: 300 MG
     Route: 048
     Dates: start: 20111018
  3. PLAVIX [Concomitant]
     Dosage: 75 MG
     Route: 048
     Dates: start: 201008, end: 201109
  4. ASPIRIN [Concomitant]
     Dosage: 81 MG
     Route: 048
  5. METOPROLOL TARTRATE [Concomitant]
     Dosage: 50 MG
     Route: 048
     Dates: start: 201012
  6. LIPITOR [Concomitant]
     Dosage: 50 MG
     Route: 048
  7. CLONIDINE HCL [Concomitant]
     Dosage: 0.2 MG
     Route: 048
     Dates: start: 201103
  8. SPIRONOLACTONE [Concomitant]
     Dosage: 50 MG
     Route: 048
     Dates: start: 201012
  9. CILOSTAZOL [Concomitant]
     Dosage: 100 MG
     Route: 048
     Dates: start: 201012
  10. DONEPEZIL HCL [Concomitant]
     Dosage: 10 MG
     Route: 048
     Dates: start: 201101
  11. ZOLPIDEM TARTRATE [Concomitant]
     Dosage: 10 MG
     Route: 048
     Dates: start: 201103
  12. ALPRAZOLAM [Concomitant]
     Dosage: 0.75 MG
     Route: 048
  13. VERAPAMIL [Concomitant]
     Dosage: 240 MG
     Route: 048
     Dates: start: 201102
  14. CEPHALEXIN [Concomitant]
     Dosage: 1500 MG
     Route: 048
  15. MULTAQ [Concomitant]
     Dosage: 800 MG
     Route: 048
     Dates: start: 201108

REACTIONS (4)
  - Myocardial infarction [Fatal]
  - Gastrointestinal haemorrhage [Unknown]
  - Gastrointestinal haemorrhage [Recovered/Resolved]
  - Rectal haemorrhage [Recovered/Resolved]
